FAERS Safety Report 21508344 (Version 1)
Quarter: 2022Q4

REPORT INFORMATION
  Report Type: Spontaneous
  Country: US (occurrence: US)
  Receive Date: 20221026
  Receipt Date: 20221026
  Transmission Date: 20230113
  Serious: Yes (Life-Threatening, Hospitalization)
  Sender: FDA-Public Use
  Company Number: US-MYLANLABS-2022M1118055

PATIENT
  Age: 18 Year
  Sex: Female
  Weight: 70.6 kg

DRUGS (19)
  1. DEXAMETHASONE [Suspect]
     Active Substance: DEXAMETHASONE
     Indication: COVID-19
     Dosage: 6 MILLIGRAM, QD
     Route: 065
  2. DEXMEDETOMIDINE [Suspect]
     Active Substance: DEXMEDETOMIDINE
     Indication: COVID-19
     Dosage: DEXMEDETOMIDINE INFUSION
     Route: 065
  3. IPRATROPIUM [Suspect]
     Active Substance: IPRATROPIUM
     Indication: COVID-19
     Dosage: 500 MICROGRAM, Q6H
     Route: 065
  4. ROCURONIUM [Suspect]
     Active Substance: ROCURONIUM BROMIDE
     Indication: COVID-19
     Dosage: 1 MILLIGRAM/KILOGRAM, SINGLE DOSE
     Route: 065
  5. ROCURONIUM [Suspect]
     Active Substance: ROCURONIUM BROMIDE
     Dosage: 1 MILLIGRAM/KILOGRAM, TWO DOSES
     Route: 065
  6. TRAZODONE [Suspect]
     Active Substance: TRAZODONE HYDROCHLORIDE
     Indication: COVID-19
     Dosage: UNK
     Route: 065
  7. LIDOCAINE [Suspect]
     Active Substance: LIDOCAINE
     Indication: COVID-19
     Dosage: 40 MILLIGRAM, Q6H, DOSAGE: 1% NEBULISED LIDOCAINE 4ML (40 MG) EVERY 6 HOURS
     Route: 065
  8. GABAPENTIN [Suspect]
     Active Substance: GABAPENTIN
     Indication: COVID-19
     Dosage: 300 MILLIGRAM, DOSAGE: 300MG IN THE MORNING AND AFTERNOON AND 900MG IN THE EVENING
     Route: 065
  9. GABAPENTIN [Suspect]
     Active Substance: GABAPENTIN
     Dosage: 900 MILLIGRAM, DOSAGE: 300MG IN THE MORNING AND AFTERNOON AND 900MG IN THE EVENING
     Route: 065
  10. ANAKINRA [Suspect]
     Active Substance: ANAKINRA
     Indication: COVID-19
     Dosage: 100 MILLIGRAM
     Route: 065
  11. ANAKINRA [Suspect]
     Active Substance: ANAKINRA
     Dosage: 300 MILLIGRAM, Q8H
     Route: 065
  12. PROPOFOL [Suspect]
     Active Substance: PROPOFOL
     Indication: COVID-19
     Dosage: 30 MCG/KG/MIN BOLUS
     Route: 065
  13. PROPOFOL [Suspect]
     Active Substance: PROPOFOL
     Dosage: DOSAGE: 90MCG/KG/MIN. RECEIVED MULTIPLE 35-70 MG BOLUSES AS NEEDED, PRN
     Route: 065
  14. CISATRACURIUM [Suspect]
     Active Substance: CISATRACURIUM
     Indication: COVID-19
     Dosage: UNK
     Route: 065
  15. DEXTROMETHORPHAN [Concomitant]
     Active Substance: DEXTROMETHORPHAN
     Indication: COVID-19
     Dosage: 10 MILLIGRAM
     Route: 065
  16. REMDESIVIR [Concomitant]
     Active Substance: REMDESIVIR
     Indication: COVID-19
     Dosage: 200 MILLIGRAM, QD
     Route: 065
  17. REMDESIVIR [Concomitant]
     Active Substance: REMDESIVIR
     Dosage: 100 MILLIGRAM
     Route: 065
  18. LINEZOLID [Concomitant]
     Active Substance: LINEZOLID
     Indication: Staphylococcal bacteraemia
     Dosage: UNK
     Route: 065
  19. ALBUTEROL [Concomitant]
     Active Substance: ALBUTEROL
     Indication: Prophylaxis
     Dosage: UNK
     Route: 065

REACTIONS (2)
  - Drug ineffective for unapproved indication [Unknown]
  - Off label use [Unknown]
